FAERS Safety Report 11317746 (Version 1)
Quarter: 2015Q3

REPORT INFORMATION
  Report Type: Spontaneous
  Country: US (occurrence: US)
  Receive Date: 20150728
  Receipt Date: 20150728
  Transmission Date: 20151125
  Serious: No
  Sender: FDA-Public Use
  Company Number: US-009507513-1507USA006379

PATIENT
  Age: 72 Year
  Sex: Male

DRUGS (1)
  1. DULERA [Suspect]
     Active Substance: FORMOTEROL FUMARATE DIHYDRATE\MOMETASONE FUROATE
     Indication: ASTHMA
     Dosage: 2 PUFFS/ TWICE DAILY
     Route: 055
     Dates: start: 2013

REACTIONS (3)
  - Laceration [Recovering/Resolving]
  - Product quality issue [Unknown]
  - Burning sensation [Recovering/Resolving]

NARRATIVE: CASE EVENT DATE: 2015
